FAERS Safety Report 8317913-0 (Version None)
Quarter: 2012Q2

REPORT INFORMATION
  Report Type: 
  Country: None (occurrence: None)
  Receive Date: 20120427
  Receipt Date: 20120420
  Transmission Date: 20120825
  Serious: Yes (Other)
  Sender: FDA-Public Use
  Company Number: BR-SANOFI-AVENTIS-2012SA028043

PATIENT
  Age: 57 Year
  Sex: Female
  Weight: 95 kg

DRUGS (3)
  1. AUTOPEN 24 [Suspect]
     Indication: DEVICE THERAPY
     Dates: start: 20100101
  2. ENALAPRIL MALEATE [Concomitant]
     Indication: BLOOD PRESSURE
  3. LANTUS [Suspect]
     Indication: TYPE 2 DIABETES MELLITUS
     Route: 065
     Dates: start: 20100101

REACTIONS (5)
  - FOOT FRACTURE [None]
  - ANAEMIA [None]
  - BALANCE DISORDER [None]
  - URINARY TRACT INFECTION [None]
  - BLOOD GLUCOSE INCREASED [None]
